FAERS Safety Report 24890040 (Version 1)
Quarter: 2025Q1

REPORT INFORMATION
  Report Type: Spontaneous
  Country: US (occurrence: US)
  Receive Date: 20250127
  Receipt Date: 20250127
  Transmission Date: 20250409
  Serious: Yes (Other)
  Sender: ORGANON
  Company Number: US-ORGANON-O2501USA001958

PATIENT
  Age: 25 Year
  Sex: Female
  Weight: 75.283 kg

DRUGS (1)
  1. NEXPLANON [Suspect]
     Active Substance: ETONOGESTREL
     Indication: Contraception
     Route: 059
     Dates: start: 20241203

REACTIONS (4)
  - Device dislocation [Not Recovered/Not Resolved]
  - Implant site pain [Not Recovered/Not Resolved]
  - Pain [Not Recovered/Not Resolved]
  - Complication associated with device [Not Recovered/Not Resolved]
